FAERS Safety Report 4283842-5 (Version None)
Quarter: 2004Q1

REPORT INFORMATION
  Report Type: 
  Country: None (occurrence: None)
  Receive Date: 20040202
  Receipt Date: 20031020
  Transmission Date: 20041129
  Serious: Yes (Hospitalization, Other)
  Sender: FDA-Public Use
  Company Number: PHBS2003JP11675

PATIENT
  Age: 52 Year
  Sex: Male
  Weight: 58 kg

DRUGS (8)
  1. HANP [Suspect]
     Indication: PROMOTION OF PERIPHERAL CIRCULATION
     Dosage: 0.1 UG/D
     Dates: start: 20031017, end: 20031017
  2. MILRILA [Suspect]
     Indication: PROMOTION OF PERIPHERAL CIRCULATION
     Dosage: 0.5 UG/D
     Dates: start: 20031017, end: 20031017
  3. CATABON [Concomitant]
     Dosage: 7 UG/D
     Dates: start: 20031017
  4. SIMULECT [Suspect]
     Indication: RENAL TRANSPLANT
     Dosage: 20 MG, ONCE/SINGLE
     Dates: start: 20031017, end: 20031017
  5. PROGRAF [Suspect]
     Indication: RENAL TRANSPLANT
     Dosage: 10 MG/D
     Route: 048
     Dates: start: 20031012
  6. CELLCEPT [Suspect]
     Indication: RENAL TRANSPLANT
     Dosage: 1 G/D
     Route: 048
     Dates: start: 20031014
  7. SOLU-MEDROL [Concomitant]
     Dosage: 500/250/250 MG/D
     Route: 042
     Dates: start: 20031017, end: 20031017
  8. SOLU-MEDROL [Concomitant]
     Dosage: 500 MG/D
     Route: 042
     Dates: start: 20031018, end: 20031021

REACTIONS (8)
  - ANURIA [None]
  - BLOOD AMYLASE INCREASED [None]
  - BLOOD PRESSURE DECREASED [None]
  - CYTOKINE RELEASE SYNDROME [None]
  - HYPOTENSION [None]
  - PAROTITIS [None]
  - PROCEDURAL COMPLICATION [None]
  - TACHYCARDIA [None]
